FAERS Safety Report 10862204 (Version 4)
Quarter: 2016Q4

REPORT INFORMATION
  Report Type: Spontaneous
  Country: US (occurrence: US)
  Receive Date: 20150224
  Receipt Date: 20161102
  Transmission Date: 20170206
  Serious: Yes (Life-Threatening, Hospitalization, Other)
  Sender: FDA-Public Use
  Company Number: US-ELI_LILLY_AND_COMPANY-US201501010976

PATIENT
  Age: 72 Year
  Sex: Male
  Weight: 102 kg

DRUGS (8)
  1. ASPIRIN                            /00002701/ [Concomitant]
     Active Substance: ASPIRIN
     Dosage: UNK
  2. TRAMADOL. [Suspect]
     Active Substance: TRAMADOL
     Indication: PAIN
     Dosage: UNK
  3. AXIRON [Suspect]
     Active Substance: TESTOSTERONE
     Indication: BLOOD TESTOSTERONE DECREASED
     Dosage: 30 MG, QD
     Route: 062
     Dates: start: 201109, end: 201203
  4. TESTIM [Suspect]
     Active Substance: TESTOSTERONE
     Indication: BLOOD TESTOSTERONE DECREASED
     Dosage: UNK, WEEKLY (1/W)
     Route: 065
     Dates: start: 2005, end: 201109
  5. TESTOSTERONE CYPIONATE. [Suspect]
     Active Substance: TESTOSTERONE CYPIONATE
     Indication: BLOOD TESTOSTERONE DECREASED
     Dosage: 200 MG, 2/W
     Route: 065
     Dates: start: 201203, end: 20130209
  6. LIPITOR [Concomitant]
     Active Substance: ATORVASTATIN CALCIUM
     Indication: PAIN
  7. MELOXICAM. [Concomitant]
     Active Substance: MELOXICAM
     Indication: ARTHRITIS
     Dosage: UNK
  8. LIPITOR [Concomitant]
     Active Substance: ATORVASTATIN CALCIUM
     Indication: HYPERLIPIDAEMIA
     Dosage: UNK UNK, QD

REACTIONS (18)
  - Cardio-respiratory arrest [Unknown]
  - Ischaemic cardiomyopathy [Unknown]
  - Endocarditis [Unknown]
  - Pulmonary congestion [Unknown]
  - Mitral valve incompetence [Unknown]
  - Tricuspid valve incompetence [Unknown]
  - Fall [Unknown]
  - Infection [Unknown]
  - Pleural effusion [Unknown]
  - Atrial fibrillation [Unknown]
  - Coronary artery disease [Unknown]
  - Device dislocation [Unknown]
  - Acute pulmonary oedema [Unknown]
  - Syncope [Unknown]
  - Myocardial infarction [Unknown]
  - Acute coronary syndrome [Unknown]
  - Device failure [Unknown]
  - Hypotension [Unknown]

NARRATIVE: CASE EVENT DATE: 2012
